FAERS Safety Report 4850449-8 (Version None)
Quarter: 2005Q4

REPORT INFORMATION
  Report Type: 
  Country: None (occurrence: None)
  Receive Date: 20051123
  Receipt Date: 20051012
  Transmission Date: 20060501
  Serious: No
  Sender: FDA-Public Use
  Company Number: TPA2005A01259

PATIENT
  Sex: Male

DRUGS (2)
  1. ROZEREM [Suspect]
     Indication: INSOMNIA
     Dosage: 8 MG, QHS, PER ORAL
     Route: 048
     Dates: start: 20051006, end: 20051007
  2. AMBIEN [Suspect]
     Indication: SLEEP DISORDER
     Dates: start: 20051005, end: 20051005

REACTIONS (4)
  - DIZZINESS [None]
  - HYPOTENSION [None]
  - INITIAL INSOMNIA [None]
  - SOMNOLENCE [None]
